FAERS Safety Report 9706234 (Version 2)
Quarter: 2013Q4

REPORT INFORMATION
  Report Type: Report from Study
  Country: DE (occurrence: DE)
  Receive Date: 20131125
  Receipt Date: 20131224
  Transmission Date: 20140711
  Serious: Yes (Hospitalization)
  Sender: FDA-Public Use
  Company Number: DE-ROCHE-1304402

PATIENT
  Age: 71 Year
  Sex: Female
  Weight: 58 kg

DRUGS (10)
  1. PERTUZUMAB [Suspect]
     Indication: BREAST CANCER
     Dosage: LOADING DOSE
     Route: 042
     Dates: start: 20130731
  2. PERTUZUMAB [Suspect]
     Dosage: MAINTAINANCE DOSE, LAST DOSE PRIOR TO THE SAE: 12/NOV/2013
     Route: 042
  3. TRASTUZUMAB [Suspect]
     Indication: BREAST CANCER
     Dosage: LAST DOSE PRIOR TO THE SAE: 12/NOV/2013, LOADING DOSE
     Route: 042
     Dates: start: 20130731
  4. TRASTUZUMAB [Suspect]
     Dosage: LAST DOSE PRIOR TO THE SAE: 12/NOV/2013, MAINTENANCE DOSE
     Route: 042
  5. PACLITAXEL [Suspect]
     Indication: BREAST CANCER
     Route: 042
     Dates: start: 20130731, end: 20130930
  6. EPIRUBICIN [Suspect]
     Indication: BREAST CANCER
     Dosage: LAST DOSE PRIOR TO THE ADVERSE EVENT: 28/OCT/2013
     Route: 042
     Dates: start: 20131028
  7. CYCLOPHOSPHAMIDE [Suspect]
     Indication: BREAST CANCER
     Dosage: LAST DOSE PRIOR TO THE ADVERSE EVENT: 28/OCT/2013.
     Route: 042
     Dates: start: 20131028
  8. CLEMASTINE [Concomitant]
     Route: 065
     Dates: start: 20131112, end: 20131112
  9. PARACETAMOL [Concomitant]
     Route: 065
     Dates: start: 20131112, end: 20131112
  10. PREDNISOLONE [Concomitant]
     Route: 065
     Dates: start: 20131112, end: 20131112

REACTIONS (1)
  - Cardiovascular disorder [Recovered/Resolved]
